FAERS Safety Report 22182512 (Version 2)
Quarter: 2023Q2

REPORT INFORMATION
  Report Type: Spontaneous
  Country: US (occurrence: None)
  Receive Date: 20230406
  Receipt Date: 20230419
  Transmission Date: 20230722
  Serious: Yes (Other)
  Sender: FDA-Public Use
  Company Number: 2023A059166

PATIENT
  Age: 80 Year
  Sex: Female

DRUGS (1)
  1. BYDUREON BCISE [Suspect]
     Active Substance: EXENATIDE
     Indication: Diabetes mellitus
     Route: 058

REACTIONS (14)
  - Macular degeneration [Unknown]
  - Spinal fracture [Unknown]
  - Osteoporosis [Unknown]
  - Back pain [Unknown]
  - Gait disturbance [Unknown]
  - Asthma [Unknown]
  - Scoliosis [Unknown]
  - Intervertebral disc protrusion [Unknown]
  - Pain [Unknown]
  - Injection site indentation [Unknown]
  - Injection site discharge [Unknown]
  - Hiccups [Unknown]
  - Injection site haemorrhage [Unknown]
  - Injection site nodule [Unknown]

NARRATIVE: CASE EVENT DATE: 20230201
